FAERS Safety Report 23334951 (Version 1)
Quarter: 2023Q4

REPORT INFORMATION
  Report Type: Spontaneous
  Country: CA (occurrence: CA)
  Receive Date: 20231225
  Receipt Date: 20231225
  Transmission Date: 20240109
  Serious: Yes (Other)
  Sender: FDA-Public Use
  Company Number: CA-GLAXOSMITHKLINE-CA2023066866

PATIENT

DRUGS (7)
  1. ZEJULA [Suspect]
     Active Substance: NIRAPARIB
     Indication: Ovarian epithelial cancer
     Dosage: 200 MG, QD
     Route: 048
     Dates: start: 20210519, end: 20230508
  2. ZEJULA [Suspect]
     Active Substance: NIRAPARIB
     Indication: Fallopian tube cancer
     Dosage: 100 MG, QD
     Route: 048
     Dates: end: 20231213
  3. ZEJULA [Suspect]
     Active Substance: NIRAPARIB
     Indication: Malignant peritoneal neoplasm
  4. CRESTOR [Concomitant]
     Active Substance: ROSUVASTATIN CALCIUM
     Indication: Product used for unknown indication
     Dosage: UNK
  5. ZOPICLONE [Concomitant]
     Active Substance: ZOPICLONE
     Indication: Product used for unknown indication
     Dosage: UNK
  6. VITAMIN B12 [Concomitant]
     Active Substance: CYANOCOBALAMIN
     Indication: Product used for unknown indication
     Dosage: UNK
  7. VITAMIN B6 [Concomitant]
     Active Substance: PYRIDOXINE HYDROCHLORIDE
     Indication: Product used for unknown indication

REACTIONS (5)
  - Malignant neoplasm progression [Unknown]
  - Abscess oral [Not Recovered/Not Resolved]
  - Mucosal inflammation [Unknown]
  - Asthenia [Unknown]
  - Urinary tract infection [Unknown]
